FAERS Safety Report 16589244 (Version 1)
Quarter: 2019Q3

REPORT INFORMATION
  Report Type: Spontaneous
  Country: IN (occurrence: IN)
  Receive Date: 20190718
  Receipt Date: 20190718
  Transmission Date: 20191004
  Serious: Yes (Hospitalization, Other)
  Sender: FDA-Public Use
  Company Number: IN-ALEMBIC PHARMACUETICALS LIMITED-2019SCAL000458

PATIENT

DRUGS (2)
  1. CEFUROXIME. [Suspect]
     Active Substance: CEFUROXIME
     Indication: WOUND
     Dosage: 500 MILLIGRAM
  2. LINEZOLID. [Suspect]
     Active Substance: LINEZOLID
     Indication: WOUND
     Dosage: 600 MILLIGRAM

REACTIONS (4)
  - Hypersensitivity vasculitis [Recovered/Resolved]
  - Skin lesion [Recovered/Resolved]
  - Blister [Recovered/Resolved]
  - Drug eruption [Recovered/Resolved]
